FAERS Safety Report 12500078 (Version 2)
Quarter: 2016Q4

REPORT INFORMATION
  Report Type: Spontaneous
  Country: US (occurrence: US)
  Receive Date: 20160627
  Receipt Date: 20161019
  Transmission Date: 20170207
  Serious: No
  Sender: FDA-Public Use
  Company Number: US-GLAXOSMITHKLINE-CHPA2015US014343

PATIENT
  Age: 68 Year
  Sex: Female

DRUGS (1)
  1. PREVACID 24 HR [Suspect]
     Active Substance: LANSOPRAZOLE
     Indication: GASTRIC PH DECREASED
     Dosage: 1 DF, QD
     Route: 048
     Dates: start: 201511

REACTIONS (7)
  - Weight increased [Unknown]
  - Off label use [Unknown]
  - Dizziness [Recovered/Resolved]
  - Chest pain [Unknown]
  - Chest discomfort [Not Recovered/Not Resolved]
  - Hyperhidrosis [Unknown]
  - Eructation [Not Recovered/Not Resolved]

NARRATIVE: CASE EVENT DATE: 201511
